FAERS Safety Report 7247895-4 (Version None)
Quarter: 2011Q1

REPORT INFORMATION
  Report Type: 
  Country: None (occurrence: None)
  Receive Date: 20110127
  Receipt Date: 20110125
  Transmission Date: 20110831
  Serious: No
  Sender: FDA-Public Use
  Company Number: US-PFIZER INC-2011017921

PATIENT
  Sex: Female
  Weight: 88.435 kg

DRUGS (1)
  1. CHANTIX [Suspect]
     Indication: SMOKING CESSATION THERAPY
     Dosage: 0.5 MG, DAILY
     Route: 048
     Dates: start: 20110124, end: 20110125

REACTIONS (3)
  - FEELING ABNORMAL [None]
  - HEADACHE [None]
  - DIARRHOEA [None]
